FAERS Safety Report 4984012-5 (Version None)
Quarter: 2006Q1

REPORT INFORMATION
  Report Type: 
  Country: None (occurrence: None)
  Receive Date: 20060301
  Receipt Date: 20051020
  Transmission Date: 20060701
  Serious: No
  Sender: FDA-Public Use
  Company Number: S05-USA-02823-01

PATIENT
  Age: 75 Year
  Sex: Female

DRUGS (10)
  1. NAMENDA [Suspect]
     Indication: BIPOLAR DISORDER
     Dosage: 5 MG BID PO
     Route: 048
     Dates: start: 20050509, end: 20050515
  2. NAMENDA [Suspect]
     Indication: BIPOLAR DISORDER
     Dosage: 15 MG QD PO
     Route: 048
     Dates: start: 20050516, end: 20050522
  3. NAMENDA [Suspect]
     Indication: BIPOLAR DISORDER
     Dosage: 10 MG BID PO
     Route: 048
     Dates: start: 20050523
  4. NAMENDA [Suspect]
     Indication: BIPOLAR DISORDER
     Dosage: 5 MG QD PO
     Route: 048
     Dates: start: 20050502, end: 20050508
  5. LAMICTAL [Suspect]
     Indication: BIPOLAR DISORDER
     Dates: start: 20050502
  6. CLONAZEPAM [Concomitant]
  7. WELLBUTRIN [Concomitant]
  8. REMINYL (GALANTAMINE) [Concomitant]
  9. TRIAMTERENE [Concomitant]
  10. OCUVITE (VITAMIN A/VITAMIN E/MINERALS) [Concomitant]

REACTIONS (1)
  - INCREASED TENDENCY TO BRUISE [None]
